FAERS Safety Report 4269370-1 (Version None)
Quarter: 2004Q1

REPORT INFORMATION
  Report Type: 
  Country: None (occurrence: None)
  Receive Date: 20040113
  Receipt Date: 20040109
  Transmission Date: 20041129
  Serious: Yes (Other)
  Sender: FDA-Public Use
  Company Number: PHBS2004CH00646

PATIENT
  Age: 21 Year
  Sex: Female

DRUGS (3)
  1. LAMISIL [Suspect]
     Indication: NAIL TINEA
     Dosage: 250 MG/D
     Route: 048
     Dates: start: 20031016
  2. MERCILON [Suspect]
     Indication: CONTRACEPTION
     Dosage: 0.02 MG ETHINYLESTR - 0.15 DESOG
     Dates: start: 20001201, end: 20031116
  3. MARVELON [Suspect]
     Indication: CONTRACEPTION
     Dosage: 0.03 MG ETHINYLESTR - 0.15 DESOG
     Dates: start: 20031124

REACTIONS (2)
  - DRUG INTERACTION [None]
  - METRORRHAGIA [None]
